FAERS Safety Report 19453697 (Version 1)
Quarter: 2021Q2

REPORT INFORMATION
  Report Type: Spontaneous
  Country: GB (occurrence: GB)
  Receive Date: 20210623
  Receipt Date: 20210623
  Transmission Date: 20210717
  Serious: Yes (Hospitalization)
  Sender: FDA-Public Use
  Company Number: GB-PFIZER INC-2021677669

PATIENT
  Age: 70 Year
  Sex: Female

DRUGS (16)
  1. TAZOCIN [Suspect]
     Active Substance: PIPERACILLIN SODIUM\TAZOBACTAM SODIUM
     Dosage: UNK
  2. PARACETAMOL [Concomitant]
     Active Substance: ACETAMINOPHEN
     Dosage: 500 MG, 1?2, 4 TIMES A DAY AS NEEDED
  3. SODIUM CHLORIDE. [Concomitant]
     Active Substance: SODIUM CHLORIDE
     Dosage: UNK
  4. AZITHROMYCIN ANHYDROUS. [Concomitant]
     Active Substance: AZITHROMYCIN ANHYDROUS
     Dosage: 250 MG MON/WED/FRI
  5. CARBOCISTEINE [Concomitant]
     Active Substance: CARBOCYSTEINE
     Dosage: 750 MG, 3X/DAY
  6. ROSUVASTATIN. [Concomitant]
     Active Substance: ROSUVASTATIN
  7. AMITRIPTYLINE [Concomitant]
     Active Substance: AMITRIPTYLINE
     Dosage: 50 MG
  8. SYMBICORT [Concomitant]
     Active Substance: BUDESONIDE\FORMOTEROL FUMARATE DIHYDRATE
     Dosage: 2 DF, 2X/DAY 400/12
     Route: 055
  9. IBANDRONIC ACID. [Concomitant]
     Active Substance: IBANDRONIC ACID
     Dosage: 150 MG, MONTHLY
  10. OMEPRAZOLE. [Concomitant]
     Active Substance: OMEPRAZOLE
     Dosage: 20 MG, 2X/DAY
  11. TERBUTALINE [Concomitant]
     Active Substance: TERBUTALINE
     Dosage: 500 UG, 4 TIMES A DAY AS NECESSARY
     Route: 055
  12. SPIRIVA [Concomitant]
     Active Substance: TIOTROPIUM BROMIDE MONOHYDRATE
     Dosage: 5 UG, 1X/DAY
     Route: 055
  13. CALCIUM/COLECALCIFEROL [Concomitant]
     Active Substance: CALCIUM\CHOLECALCIFEROL
     Dosage: 1 DF, 2X/DAY COLECALCIFEROL 400UNIT / CALCIUM CARBONATE 1.25G
  14. GLANDOSANE [CALCIUM CHLORIDE;CARMELLOSE SODIUM;MAGNESIUM CHLORIDE;POTA [Concomitant]
     Dosage: UNK. AS NEEDED
     Route: 048
  15. NYSTATIN. [Concomitant]
     Active Substance: NYSTATIN
     Dosage: 100 IU, 100,000UNITS/ML 4 TIMES A DAY AS NEEDED
     Route: 048
  16. MONTELUKAST [Concomitant]
     Active Substance: MONTELUKAST SODIUM
     Dosage: 10 MG, DAILY

REACTIONS (3)
  - Rash erythematous [Recovered/Resolved]
  - Pruritus [Unknown]
  - Feeling hot [Unknown]
